FAERS Safety Report 4296101-1 (Version None)
Quarter: 2004Q1

REPORT INFORMATION
  Report Type: 
  Country: None (occurrence: None)
  Receive Date: 20040212
  Receipt Date: 20040206
  Transmission Date: 20041129
  Serious: Yes (Hospitalization)
  Sender: FDA-Public Use
  Company Number: SEWYE564506FEB04

PATIENT
  Age: 38 Year
  Sex: Male

DRUGS (8)
  1. RAPAMUNE [Suspect]
     Indication: IMMUNOSUPPRESSANT DRUG THERAPY
     Dosage: ORAL
     Route: 048
     Dates: start: 20040105, end: 20040119
  2. AZATHIOPRINE [Concomitant]
  3. SELO-ZOK (METOPROLOL SUCCINATE) [Concomitant]
  4. DIURAL (FUROSEMIDE) [Concomitant]
  5. DIAMOX [Concomitant]
  6. ETALPHA (ALFACALCIDOL) [Concomitant]
  7. ZYRTEC [Concomitant]
  8. INSULIN [Concomitant]

REACTIONS (2)
  - EXANTHEM [None]
  - PRURITUS [None]
